FAERS Safety Report 24077909 (Version 2)
Quarter: 2024Q3

REPORT INFORMATION
  Report Type: Spontaneous
  Country: US (occurrence: US)
  Receive Date: 20240711
  Receipt Date: 20240717
  Transmission Date: 20241017
  Serious: No
  Sender: GLAXOSMITHKLINE
  Company Number: US-GSKCCFUS-Case-02045809_AE-113346

PATIENT
  Age: 26 Year
  Sex: Female

DRUGS (2)
  1. NUCALA [Suspect]
     Active Substance: MEPOLIZUMAB
     Indication: Product used for unknown indication
     Dosage: 1 DF, MO
  2. NUCALA [Suspect]
     Active Substance: MEPOLIZUMAB
     Dosage: 100 MG, Q4W
     Route: 058
     Dates: start: 20240630

REACTIONS (11)
  - Headache [Recovered/Resolved]
  - Lethargy [Unknown]
  - Fatigue [Recovering/Resolving]
  - Brain fog [Unknown]
  - Musculoskeletal stiffness [Recovering/Resolving]
  - Arthralgia [Recovering/Resolving]
  - Dyspnoea [Recovering/Resolving]
  - Oral herpes [Recovering/Resolving]
  - Asthenia [Recovering/Resolving]
  - Condition aggravated [Unknown]
  - Influenza [Unknown]

NARRATIVE: CASE EVENT DATE: 20240601
